FAERS Safety Report 6113469 (Version 3)
Quarter: 2017Q1

REPORT INFORMATION
  Report Type: Spontaneous
  Country: PL (occurrence: PL)
  Receive Date: 20060823
  Receipt Date: 20170203
  Transmission Date: 20170429
  Serious: Yes (Death, Other)
  Sender: FDA-Public Use
  Company Number: PHBS2006PL12197

PATIENT
  Age: 55 Year

DRUGS (6)
  1. CYCLOPHOSPHAMIDE W/VINCRISTINE/PREDNISONE [Concomitant]
     Active Substance: CYCLOPHOSPHAMIDE\PREDNISONE\VINCRISTINE
     Indication: PLASMA CELL MYELOMA
     Route: 065
     Dates: start: 1999, end: 2000
  2. ADRIAMYCINE + VINCRISTINE [Concomitant]
     Indication: PLASMA CELL MYELOMA
     Route: 065
     Dates: start: 1999, end: 2000
  3. MELPHALAN [Concomitant]
     Active Substance: MELPHALAN
     Indication: PLASMA CELL MYELOMA
     Route: 065
     Dates: start: 1999, end: 2000
  4. PREDNISONE. [Concomitant]
     Active Substance: PREDNISONE
     Indication: PLASMA CELL MYELOMA
     Route: 065
     Dates: start: 1999, end: 2000
  5. CARMUSTINE [Concomitant]
     Active Substance: CARMUSTINE
     Indication: PLASMA CELL MYELOMA
     Route: 065
     Dates: start: 1999, end: 2000
  6. ZOLEDRONIC ACID [Suspect]
     Active Substance: ZOLEDRONIC ACID
     Indication: PLASMA CELL MYELOMA
     Dosage: 4 MG, QMO
     Route: 042
     Dates: start: 1999, end: 2000

REACTIONS (5)
  - Pain in jaw [Unknown]
  - Sepsis [Fatal]
  - Exposed bone in jaw [Unknown]
  - Pancytopenia [Fatal]
  - Osteonecrosis of jaw [Unknown]
